FAERS Safety Report 25862507 (Version 2)
Quarter: 2025Q4

REPORT INFORMATION
  Report Type: Spontaneous
  Country: CN (occurrence: CN)
  Receive Date: 20250930
  Receipt Date: 20251126
  Transmission Date: 20260117
  Serious: Yes (Other)
  Sender: REGENERON
  Company Number: CN-BAYER-2025A128483

PATIENT

DRUGS (2)
  1. EYLEA [Suspect]
     Active Substance: AFLIBERCEPT
     Indication: Product used for unknown indication
     Dosage: UNK UNK, ONCE
     Route: 031
  2. EYLEA [Suspect]
     Active Substance: AFLIBERCEPT
     Dosage: UNK UNK, ONCE
     Route: 031
     Dates: start: 20250919, end: 20250919

REACTIONS (2)
  - Blindness [Unknown]
  - Bacterial endophthalmitis [Unknown]

NARRATIVE: CASE EVENT DATE: 20250920
